FAERS Safety Report 9692300 (Version 1)
Quarter: 2013Q4

REPORT INFORMATION
  Report Type: Report from Study
  Country: CL (occurrence: CL)
  Receive Date: 20131118
  Receipt Date: 20131118
  Transmission Date: 20140711
  Serious: Yes (Hospitalization)
  Sender: FDA-Public Use
  Company Number: CL-ROCHE-1303176

PATIENT
  Age: 69 Year
  Sex: Female
  Weight: 52 kg

DRUGS (2)
  1. XELODA [Suspect]
     Indication: BREAST CANCER
     Dosage: 14 DAYS PER CYCLE
     Route: 048
     Dates: start: 20130814, end: 20131111
  2. BROMAZEPAM [Concomitant]
     Indication: ANXIETY
     Route: 048
     Dates: start: 1993

REACTIONS (5)
  - Jaundice [Not Recovered/Not Resolved]
  - Ocular icterus [Recovering/Resolving]
  - Yellow skin [Recovering/Resolving]
  - Abdominal distension [Recovering/Resolving]
  - Pain [Recovering/Resolving]
